FAERS Safety Report 5389140-0 (Version None)
Quarter: 2007Q3

REPORT INFORMATION
  Report Type: 
  Country: None (occurrence: None)
  Receive Date: 20070713
  Receipt Date: 20070713
  Transmission Date: 20080115
  Serious: Yes (Other)
  Sender: FDA-Public Use
  Company Number: None

PATIENT
  Age: 62 Year
  Sex: Female
  Weight: 65.318 kg

DRUGS (1)
  1. CHANTIX [Suspect]
     Indication: SMOKING CESSATION THERAPY
     Dosage: STARTER PACK ONE PILL A DAY PO
     Route: 048
     Dates: start: 20070301, end: 20070329

REACTIONS (4)
  - APHASIA [None]
  - IRRITABILITY [None]
  - PERSONALITY CHANGE [None]
  - TRANSIENT ISCHAEMIC ATTACK [None]
